FAERS Safety Report 5144478-7 (Version None)
Quarter: 2006Q4

REPORT INFORMATION
  Report Type: 
  Country: None (occurrence: None)
  Receive Date: 20061106
  Receipt Date: 20061103
  Transmission Date: 20070319
  Serious: Yes (Other)
  Sender: FDA-Public Use
  Company Number: TR-ROXANE LABORATORIES, INC-2006-DE-05815GD

PATIENT

DRUGS (11)
  1. MORPHINE [Suspect]
     Indication: POSTOPERATIVE ANALGESIA
     Route: 037
  2. MORPHINE [Suspect]
     Dosage: 2 MG DOSE, REPEATED, IF NECESSARY (10 MIN MINIMUM INTERVALS), THEREAFTER PCA 1 MG IV BOLUSES ON DEMA
     Route: 042
  3. DIAZEPAM [Concomitant]
     Route: 042
  4. MIDAZOLAM [Concomitant]
     Indication: CATHETER PLACEMENT
     Dosage: 2 TO 5 MG
     Route: 042
  5. HEPARIN [Concomitant]
     Dosage: 100 U/KG
  6. THIOPENTAL SODIUM [Concomitant]
     Indication: INDUCTION OF ANAESTHESIA
     Dosage: 5 TO 7 MG/KG
  7. VECURONIUM BROMIDE [Concomitant]
     Indication: INDUCTION OF ANAESTHESIA
  8. REMIFENTANIL [Concomitant]
     Indication: INDUCTION OF ANAESTHESIA
     Dosage: BOLUS OF 0.5 MCG/KG
  9. REMIFENTANIL [Concomitant]
     Indication: MAINTENANCE OF ANAESTHESIA
     Dosage: INFUSION OF 0.25 - 1 MCG/KG/MIN
  10. ISOFLURANE [Concomitant]
     Indication: MAINTENANCE OF ANAESTHESIA
     Dosage: 0.5% - 1.5%
     Route: 055
  11. PROPOFOL [Concomitant]
     Indication: SEDATIVE THERAPY
     Dosage: INFUSION OF 0.5 - 3 MG/KG/H

REACTIONS (1)
  - PULMONARY HYPERTENSION [None]
